FAERS Safety Report 5491327-3 (Version None)
Quarter: 2007Q4

REPORT INFORMATION
  Report Type: 
  Country: None (occurrence: None)
  Receive Date: 20071019
  Receipt Date: 20071015
  Transmission Date: 20080405
  Serious: Yes (Hospitalization)
  Sender: FDA-Public Use
  Company Number: DE-BOEHRINGER INGELHEIM PHARMACEUTICALS, INC.-2003-BP-04137BP

PATIENT
  Sex: Female
  Weight: 87 kg

DRUGS (7)
  1. MICARDIS [Suspect]
     Indication: CARDIOVASCULAR DISORDER
     Route: 048
     Dates: start: 20030110, end: 20030523
  2. MICARDIS [Suspect]
     Indication: CEREBROVASCULAR ACCIDENT PROPHYLAXIS
  3. RAMIPRIL [Suspect]
     Indication: CARDIOVASCULAR DISORDER
     Route: 048
     Dates: start: 20030110, end: 20030523
  4. RAMIPRIL [Suspect]
     Indication: CEREBROVASCULAR ACCIDENT PROPHYLAXIS
  5. HCT (THIAZID) [Concomitant]
  6. FELODIPINE [Concomitant]
  7. METFORMIN HCL [Concomitant]

REACTIONS (1)
  - HEPATITIS ACUTE [None]
